FAERS Safety Report 7968899-X (Version None)
Quarter: 2011Q4

REPORT INFORMATION
  Report Type: 
  Country: None (occurrence: None)
  Receive Date: 20111209
  Receipt Date: 20111025
  Transmission Date: 20120403
  Serious: Yes (Other)
  Sender: FDA-Public Use
  Company Number: JP-SANOFI-AVENTIS-2011SA071850

PATIENT

DRUGS (6)
  1. LANTUS [Suspect]
     Route: 065
     Dates: start: 20110922
  2. SOLOSTAR [Suspect]
     Route: 065
     Dates: start: 20110922
  3. LANTUS [Suspect]
     Route: 065
  4. SOLOSTAR [Suspect]
     Route: 065
     Dates: start: 20111020
  5. LANTUS [Suspect]
     Route: 065
     Dates: start: 20111020
  6. SOLOSTAR [Suspect]
     Indication: DEVICE THERAPY
     Route: 065

REACTIONS (4)
  - DIABETES MELLITUS INADEQUATE CONTROL [None]
  - INCORRECT STORAGE OF DRUG [None]
  - PRODUCT QUALITY ISSUE [None]
  - DEVICE ISSUE [None]
